FAERS Safety Report 23160144 (Version 1)
Quarter: 2023Q4

REPORT INFORMATION
  Report Type: Spontaneous
  Country: NL (occurrence: NL)
  Receive Date: 20231108
  Receipt Date: 20231108
  Transmission Date: 20240110
  Serious: Yes (Other)
  Sender: FDA-Public Use
  Company Number: NL-009507513-2311NLD001633

PATIENT
  Age: 78 Year
  Sex: Male

DRUGS (1)
  1. KEYTRUDA [Suspect]
     Active Substance: PEMBROLIZUMAB
     Dosage: UNK
     Dates: start: 202010

REACTIONS (5)
  - Pneumonia aspiration [Unknown]
  - Cardiac failure [Unknown]
  - Diverticulitis [Unknown]
  - Immune-mediated enterocolitis [Unknown]
  - Aortic valve stenosis [Unknown]

NARRATIVE: CASE EVENT DATE: 20210901
